FAERS Safety Report 5798882-4 (Version None)
Quarter: 2008Q3

REPORT INFORMATION
  Report Type: 
  Country: None (occurrence: None)
  Receive Date: 20080702
  Receipt Date: 20080626
  Transmission Date: 20090109
  Serious: Yes (Hospitalization, Other)
  Sender: FDA-Public Use
  Company Number: US-MERCK-0704USA04322

PATIENT
  Age: 64 Year
  Sex: Female

DRUGS (9)
  1. FOSAMAX [Suspect]
     Indication: OSTEOPOROSIS
     Route: 048
     Dates: end: 20060522
  2. FOSAMAX [Suspect]
     Route: 048
     Dates: start: 20010521
  3. LEVOXYL [Concomitant]
     Indication: THYROID DISORDER
     Route: 065
     Dates: start: 19860101
  4. FUROSEMIDE [Concomitant]
     Indication: FLUID RETENTION
     Route: 065
     Dates: start: 19970101
  5. POTASSIUM (UNSPECIFIED) [Concomitant]
     Indication: MINERAL SUPPLEMENTATION
     Route: 065
     Dates: start: 19970101
  6. MOBIC [Concomitant]
     Indication: ARTHRITIS
     Route: 065
     Dates: start: 20020101
  7. CRESTOR [Concomitant]
     Indication: BLOOD CHOLESTEROL
     Route: 065
     Dates: start: 20020101
  8. LOTREL [Concomitant]
     Indication: HYPERTENSION
     Route: 065
     Dates: start: 20040101
  9. ALLOPURINOL [Concomitant]
     Indication: NEPHROLITHIASIS
     Route: 065
     Dates: start: 19920101, end: 20070501

REACTIONS (5)
  - NEPHROLITHIASIS [None]
  - OSTEOMYELITIS [None]
  - OSTEONECROSIS [None]
  - PANIC ATTACK [None]
  - SPINAL COLUMN STENOSIS [None]
